FAERS Safety Report 19724610 (Version 1)
Quarter: 2021Q3

REPORT INFORMATION
  Report Type: Spontaneous
  Country: DE (occurrence: DE)
  Receive Date: 20210819
  Receipt Date: 20210819
  Transmission Date: 20211014
  Serious: Yes (Life-Threatening, Hospitalization, Other)
  Sender: FDA-Public Use
  Company Number: DE-MYLANLABS-2021M1053452

PATIENT
  Age: 7 Year
  Sex: Female
  Weight: 17 kg

DRUGS (5)
  1. OMEPRAZOL                          /00661201/ [Concomitant]
     Active Substance: OMEPRAZOLE
     Dosage: 20 MILLIGRAM
  2. VIGABATRIN. [Suspect]
     Active Substance: VIGABATRIN
     Indication: AUTISM SPECTRUM DISORDER
     Dosage: 750 MILLIGRAM
  3. LAMOTRIGINE. [Suspect]
     Active Substance: LAMOTRIGINE
     Indication: EPILEPSY
     Dosage: 75 MILLIGRAM
  4. MELATONIN [Concomitant]
     Active Substance: MELATONIN
     Indication: AUTISM SPECTRUM DISORDER
     Dosage: 2 MILLIGRAM
  5. LEVETIRACETAM. [Suspect]
     Active Substance: LEVETIRACETAM
     Indication: EPILEPSY
     Dosage: 600 MILLIGRAM

REACTIONS (4)
  - Pneumonia [Unknown]
  - Seizure [Unknown]
  - Anticonvulsant drug level decreased [Unknown]
  - Status epilepticus [Unknown]

NARRATIVE: CASE EVENT DATE: 20181028
